FAERS Safety Report 23257397 (Version 1)
Quarter: 2023Q4

REPORT INFORMATION
  Report Type: Spontaneous
  Country: US (occurrence: US)
  Receive Date: 20231204
  Receipt Date: 20231204
  Transmission Date: 20240109
  Serious: Yes (Hospitalization)
  Sender: FDA-Public Use
  Company Number: US-STRIDES ARCOLAB LIMITED-2023SP016643

PATIENT
  Age: 9 Year
  Sex: Male

DRUGS (29)
  1. ATOMOXETINE [Suspect]
     Active Substance: ATOMOXETINE
     Indication: Disruptive mood dysregulation disorder
     Dosage: 40 MILLIGRAM, EVERY MORNING (ONCE EVERY MORNING)
     Route: 065
  2. ATOMOXETINE [Suspect]
     Active Substance: ATOMOXETINE
     Indication: Attention deficit hyperactivity disorder
     Dosage: 60 MILLIGRAM
     Route: 065
  3. ATOMOXETINE [Suspect]
     Active Substance: ATOMOXETINE
     Indication: Major depression
  4. ATOMOXETINE [Suspect]
     Active Substance: ATOMOXETINE
     Indication: Psychotic symptom
  5. CITALOPRAM [Suspect]
     Active Substance: CITALOPRAM HYDROBROMIDE
     Indication: Disruptive mood dysregulation disorder
     Dosage: 5 MILLIGRAM, EVERY MORNING, PER DAY (ONCE EVERY MORNING)
     Route: 065
  6. CITALOPRAM [Suspect]
     Active Substance: CITALOPRAM HYDROBROMIDE
     Indication: Attention deficit hyperactivity disorder
     Dosage: 20 MILLIGRAM
     Route: 065
  7. CITALOPRAM [Suspect]
     Active Substance: CITALOPRAM HYDROBROMIDE
     Indication: Major depression
  8. CITALOPRAM [Suspect]
     Active Substance: CITALOPRAM HYDROBROMIDE
     Indication: Psychotic symptom
  9. MELATONIN [Suspect]
     Active Substance: MELATONIN
     Indication: Disruptive mood dysregulation disorder
     Dosage: 5 MILLIGRAM, PER DAY, EVERY EVENING
     Route: 065
  10. MELATONIN [Suspect]
     Active Substance: MELATONIN
     Indication: Attention deficit hyperactivity disorder
  11. MELATONIN [Suspect]
     Active Substance: MELATONIN
     Indication: Major depression
  12. MELATONIN [Suspect]
     Active Substance: MELATONIN
     Indication: Psychotic symptom
  13. LAMOTRIGINE [Suspect]
     Active Substance: LAMOTRIGINE
     Indication: Disruptive mood dysregulation disorder
     Dosage: UNK
     Route: 065
  14. LAMOTRIGINE [Suspect]
     Active Substance: LAMOTRIGINE
     Indication: Attention deficit hyperactivity disorder
  15. LAMOTRIGINE [Suspect]
     Active Substance: LAMOTRIGINE
     Indication: Major depression
  16. LAMOTRIGINE [Suspect]
     Active Substance: LAMOTRIGINE
     Indication: Psychotic symptom
  17. ARIPIPRAZOLE [Suspect]
     Active Substance: ARIPIPRAZOLE
     Indication: Disruptive mood dysregulation disorder
     Dosage: UNK, INITIAL DOSE NOT STATED
     Route: 065
  18. ARIPIPRAZOLE [Suspect]
     Active Substance: ARIPIPRAZOLE
     Indication: Attention deficit hyperactivity disorder
     Dosage: 2.5 MILLIGRAM, PER DAY, EVERY EVENING
     Route: 065
  19. ARIPIPRAZOLE [Suspect]
     Active Substance: ARIPIPRAZOLE
     Indication: Major depression
     Dosage: 5 MILLIGRAM, BID
     Route: 065
  20. ARIPIPRAZOLE [Suspect]
     Active Substance: ARIPIPRAZOLE
     Indication: Psychotic symptom
     Dosage: 20 MILLIGRAM, PER DAY
     Route: 065
  21. ARIPIPRAZOLE [Suspect]
     Active Substance: ARIPIPRAZOLE
     Dosage: UNK,TAPPERED
     Route: 065
  22. RISPERIDONE [Suspect]
     Active Substance: RISPERIDONE
     Indication: Disruptive mood dysregulation disorder
     Dosage: 0.25 MILLIGRAM, PER DAY, EVERY EVENING
     Route: 065
  23. RISPERIDONE [Suspect]
     Active Substance: RISPERIDONE
     Indication: Attention deficit hyperactivity disorder
     Dosage: UNK, TAPERED
     Route: 065
  24. RISPERIDONE [Suspect]
     Active Substance: RISPERIDONE
     Indication: Major depression
  25. RISPERIDONE [Suspect]
     Active Substance: RISPERIDONE
     Indication: Psychotic symptom
  26. GUANFACINE [Concomitant]
     Active Substance: GUANFACINE
     Indication: Disruptive mood dysregulation disorder
     Dosage: 3 MILLIGRAM, PER DAY, EVERY EVENING, EXTENDED-RELEASE
     Route: 065
  27. GUANFACINE [Concomitant]
     Active Substance: GUANFACINE
     Indication: Attention deficit hyperactivity disorder
  28. GUANFACINE [Concomitant]
     Active Substance: GUANFACINE
     Indication: Major depression
  29. GUANFACINE [Concomitant]
     Active Substance: GUANFACINE
     Indication: Psychotic symptom

REACTIONS (3)
  - Drug ineffective [Unknown]
  - Aggression [Unknown]
  - Off label use [Unknown]
